FAERS Safety Report 8393872-X (Version None)
Quarter: 2012Q2

REPORT INFORMATION
  Report Type: 
  Country: None (occurrence: None)
  Receive Date: 20120530
  Receipt Date: 20120521
  Transmission Date: 20120825
  Serious: Yes (Hospitalization)
  Sender: FDA-Public Use
  Company Number: DK-BRISTOL-MYERS SQUIBB COMPANY-16606352

PATIENT
  Sex: Male

DRUGS (1)
  1. QUESTRAN [Suspect]

REACTIONS (2)
  - PRODUCT SOLUBILITY ABNORMAL [None]
  - LIVER DISORDER [None]
